FAERS Safety Report 15491234 (Version 2)
Quarter: 2020Q1

REPORT INFORMATION
  Report Type: Other
  Country: GB (occurrence: GB)
  Receive Date: 20181012
  Receipt Date: 20200103
  Transmission Date: 20200409
  Serious: Yes (Other)
  Sender: FDA-Public Use
  Company Number: GB-LUPIN PHARMACEUTICALS INC.-2017-07170

PATIENT
  Age: 62 Year
  Sex: Female
  Weight: 95 kg

DRUGS (4)
  1. CEPHALEXIN. [Suspect]
     Active Substance: CEPHALEXIN
     Indication: ABDOMINAL PAIN LOWER
     Dosage: 1500 MG, QD (5 DAY COURSE)
     Route: 065
     Dates: start: 20171019, end: 20171020
  2. BRINZOLAMIDE [Concomitant]
     Active Substance: BRINZOLAMIDE
     Indication: OPTIC ATROPHY
     Dosage: UNK
     Route: 065
  3. METRONIDAZOLE TABLETS [Suspect]
     Active Substance: METRONIDAZOLE
     Indication: ABDOMINAL PAIN LOWER
     Dosage: 1200 MG, QD, 5 DAY COURSE
     Route: 065
     Dates: start: 20171019, end: 20171020
  4. XALATAN [Concomitant]
     Active Substance: LATANOPROST
     Indication: OPTIC ATROPHY
     Dosage: UNK
     Route: 065

REACTIONS (2)
  - Pruritus [Not Recovered/Not Resolved]
  - Rash papular [Not Recovered/Not Resolved]
